FAERS Safety Report 8764694 (Version 1)
Quarter: 2012Q4

REPORT INFORMATION
  Report Type: 
  Country: FR (occurrence: FR)
  Receive Date: 20120831
  Receipt Date: 20120831
  Transmission Date: 20130627
  Serious: Yes (Hospitalization, Other)
  Sender: FDA-Public Use
  Company Number: FR-PFIZER INC-2012209519

PATIENT
  Age: 66 Year
  Sex: Male
  Weight: 71.66 kg

DRUGS (19)
  1. EFFEXOR [Suspect]
     Dosage: 50 mg, UNK
     Route: 048
  2. DETICENE [Suspect]
     Dosage: cycle of 4 days of 460 mg/day
     Route: 042
     Dates: start: 19980713, end: 20020219
  3. MUPHORAN [Suspect]
     Dosage: unknown dose at the beginning, then 180 mg, then 150 mg and then 125 mg
     Route: 042
     Dates: start: 19990420, end: 19991213
  4. GLUCOPHAGE [Suspect]
     Dosage: 850 mg, 2x/day
     Route: 048
  5. AMARYL [Suspect]
     Dosage: 4 mg, UNK
     Route: 048
  6. DAONIL [Concomitant]
     Dosage: 1 DF, 3x/day
     Dates: start: 2004
  7. LIPANTHYL [Concomitant]
     Dosage: 160 mg once a day
     Dates: start: 2004
  8. MAXEPA [Concomitant]
     Dosage: UNK
     Dates: start: 2004
  9. ASPEGIC [Concomitant]
     Dosage: 250 mg once a day
     Dates: start: 2004
  10. MYOLASTAN [Concomitant]
     Dosage: UNK
     Dates: start: 2004
  11. RIVOTRIL [Concomitant]
     Dosage: UNK
     Dates: start: 2004
  12. DEPAKOTE [Concomitant]
     Dosage: UNK
     Dates: start: 2004
  13. JANUVIA [Concomitant]
     Dosage: UNK
  14. AVANDAMET [Concomitant]
     Dosage: UNK
  15. CRESTOR [Concomitant]
     Dosage: 5 mg, UNK
  16. KARDEGIC [Concomitant]
     Dosage: 160 mg, UNK
  17. DI-ANTALVIC [Concomitant]
     Dosage: UNK
  18. OMIX [Concomitant]
     Dosage: UNK
  19. TOPALGIC [Concomitant]
     Dosage: UNK

REACTIONS (7)
  - Poverty of speech [Recovered/Resolved]
  - Aphasia [Recovered/Resolved]
  - Disorientation [Recovered/Resolved]
  - Headache [Recovered/Resolved]
  - Epilepsy [Unknown]
  - Transient ischaemic attack [Recovered/Resolved]
  - Hyperlipidaemia [Recovered/Resolved]
